FAERS Safety Report 7366602-8 (Version None)
Quarter: 2011Q1

REPORT INFORMATION
  Report Type: 
  Country: None (occurrence: None)
  Receive Date: 20110309
  Receipt Date: 20110222
  Transmission Date: 20110831
  Serious: Yes (Other)
  Sender: FDA-Public Use
  Company Number: AUR-APL-2011-00807

PATIENT
  Age: 58 Year
  Sex: Male

DRUGS (18)
  1. CEFTRIAXONE SODIUM [Suspect]
     Dosage: 2000MG- BID
     Dates: start: 20110110, end: 20110123
  2. DALACIN [Suspect]
     Dosage: 300MG-QID-
     Dates: start: 20110124
  3. PREDNISOLONE [Concomitant]
  4. FRAXIPARINE [Concomitant]
  5. DIPIDOLAR [Concomitant]
  6. PANTOPRAZOL [Concomitant]
  7. TEMAZEPAM [Concomitant]
  8. SIMVASTATIN [Concomitant]
  9. ALLOPURINOL [Concomitant]
  10. CODEINE [Concomitant]
  11. DICLOFENAC SODIUM [Concomitant]
  12. ENALAPRIL [Concomitant]
  13. NIZORAL [Concomitant]
  14. CODEINE PHOSPHATE AND ACETAMINOPHEN [Concomitant]
  15. AMOXICILLIN [Concomitant]
  16. GLIMEPIRIDE [Concomitant]
  17. MOVICOLON [Concomitant]
  18. COLCHICINE [Concomitant]

REACTIONS (1)
  - CHOLESTASIS [None]
